FAERS Safety Report 6772593-0 (Version None)
Quarter: 2010Q2

REPORT INFORMATION
  Report Type: 
  Country: None (occurrence: None)
  Receive Date: 20100616
  Receipt Date: 20091130
  Transmission Date: 20101027
  Serious: No
  Sender: FDA-Public Use
  Company Number: US-ASTRAZENECA-2009SE29627

PATIENT
  Age: 66 Year
  Sex: Female

DRUGS (4)
  1. PULMICORT FLEXHALER [Suspect]
     Indication: ASTHMA
     Dosage: 180 MICROGRAMS ONE PUFF ONCE A DAY
     Route: 055
  2. SEREVENT [Concomitant]
  3. NOVALOG INSULIN [Concomitant]
  4. LANTIS INSULIN [Concomitant]

REACTIONS (1)
  - BLOOD GLUCOSE INCREASED [None]
